FAERS Safety Report 9980771 (Version 1)
Quarter: 2014Q1

REPORT INFORMATION
  Report Type: Spontaneous
  Country: US (occurrence: None)
  Receive Date: 20140306
  Receipt Date: 20140306
  Transmission Date: 20141002
  Serious: Yes (Death, Hospitalization)
  Sender: FDA-Public Use
  Company Number: None

PATIENT
  Age: 82 Year
  Sex: Male
  Weight: 76 kg

DRUGS (1)
  1. SUNITINIB MALATE [Suspect]
     Dates: start: 20140214, end: 20140228

REACTIONS (17)
  - Dizziness [None]
  - Asthenia [None]
  - Nausea [None]
  - Fatigue [None]
  - Abdominal pain [None]
  - Back pain [None]
  - No therapeutic response [None]
  - Respiratory distress [None]
  - Escherichia test positive [None]
  - Bandaemia [None]
  - White blood cell count decreased [None]
  - General physical health deterioration [None]
  - Respiratory failure [None]
  - Agitation [None]
  - Tachycardia [None]
  - Bradycardia [None]
  - Hypotension [None]
